FAERS Safety Report 5008333-5 (Version None)
Quarter: 2006Q2

REPORT INFORMATION
  Report Type: 
  Country: None (occurrence: None)
  Receive Date: 20060403
  Receipt Date: 20050614
  Transmission Date: 20061013
  Serious: Yes (Other)
  Sender: FDA-Public Use
  Company Number: 05-000460

PATIENT
  Age: 57 Year
  Sex: Female
  Weight: 61.2 kg

DRUGS (1)
  1. ESTRACE [Suspect]
     Indication: ATROPHIC VULVOVAGINITIS
     Dosage: 1 G, 3XWEEKLY, VAGINAL
     Route: 067
     Dates: start: 19940101

REACTIONS (2)
  - BREAST CANCER FEMALE [None]
  - VAGINAL BURNING SENSATION [None]
